FAERS Safety Report 18060218 (Version 3)
Quarter: 2020Q3

REPORT INFORMATION
  Report Type: Spontaneous
  Country: TR (occurrence: TR)
  Receive Date: 20200723
  Receipt Date: 20200729
  Transmission Date: 20201103
  Serious: Yes (Other)
  Sender: FDA-Public Use
  Company Number: TR-PFIZER INC-2020276268

PATIENT
  Age: 77 Year
  Sex: Female

DRUGS (1)
  1. LORVIQUA [Suspect]
     Active Substance: LORLATINIB
     Indication: LUNG CARCINOMA CELL TYPE UNSPECIFIED STAGE IV
     Dosage: 100 MG, ONCE A DAY

REACTIONS (8)
  - Loss of consciousness [Unknown]
  - Gait inability [Unknown]
  - Muscular weakness [Unknown]
  - Dizziness [Unknown]
  - Memory impairment [Unknown]
  - Pain in extremity [Unknown]
  - Confusional state [Unknown]
  - Insomnia [Unknown]
